FAERS Safety Report 7769838-7 (Version None)
Quarter: 2011Q3

REPORT INFORMATION
  Report Type: 
  Country: None (occurrence: None)
  Receive Date: 20110922
  Receipt Date: 20110202
  Transmission Date: 20111222
  Serious: No
  Sender: FDA-Public Use
  Company Number: US-ASTRAZENECA-2011SE05696

PATIENT
  Age: 40 Year
  Sex: Female
  Weight: 61.2 kg

DRUGS (4)
  1. LORAZEPAM [Concomitant]
  2. PRISTIQ [Concomitant]
  3. SEROQUEL XR [Suspect]
     Indication: BIPOLAR DISORDER
     Route: 048
     Dates: start: 20090101, end: 20110118
  4. SEROQUEL XR [Suspect]
     Route: 048
     Dates: start: 20110131

REACTIONS (2)
  - INSOMNIA [None]
  - DRUG DOSE OMISSION [None]
